FAERS Safety Report 12758287 (Version 1)
Quarter: 2016Q3

REPORT INFORMATION
  Report Type: Spontaneous
  Country: US (occurrence: US)
  Receive Date: 20160916
  Receipt Date: 20160916
  Transmission Date: 20161109
  Serious: Yes (Other)
  Sender: FDA-Public Use
  Company Number: None

PATIENT
  Age: 68 Year
  Sex: Male
  Weight: 99 kg

DRUGS (25)
  1. BUMETANIDE. [Concomitant]
     Active Substance: BUMETANIDE
  2. VITAMIN E [Concomitant]
     Active Substance: .ALPHA.-TOCOPHEROL
  3. BRILINTA [Concomitant]
     Active Substance: TICAGRELOR
  4. OMEPRAZOLE. [Concomitant]
     Active Substance: OMEPRAZOLE
  5. VITAMIN C [Concomitant]
     Active Substance: ASCORBIC ACID
  6. PRALUENT [Suspect]
     Active Substance: ALIROCUMAB
     Indication: HYPERCHOLESTEROLAEMIA
     Dosage: OTHER STRENGTH:;OTHER DOSE:;OTHER FREQUENCY:BI-WEEKLY;OTHER ROUTE:
     Route: 058
     Dates: start: 20160506, end: 20160617
  7. CPAP MACHINE [Concomitant]
  8. KRILL OIL [Concomitant]
     Active Substance: DIETARY SUPPLEMENT
  9. TURMERIC [Concomitant]
     Active Substance: TURMERIC
  10. ASA [Concomitant]
     Active Substance: ASPIRIN
  11. VITAMIN D3 [Concomitant]
     Active Substance: CHOLECALCIFEROL
  12. FLAXSEED [Concomitant]
     Active Substance: FLAX SEED
  13. KOLIC (GARLIC EXTRACT) [Concomitant]
  14. SUPER-OXIDE DISMUTASE [Concomitant]
  15. COENZYME Q10 [Concomitant]
     Active Substance: UBIDECARENONE
  16. CHROMIUM PICOLINATE [Concomitant]
     Active Substance: CHROMIUM PICOLINATE
  17. TEKTURNA [Concomitant]
     Active Substance: ALISKIREN HEMIFUMARATE
  18. DUTASTERIDE. [Concomitant]
     Active Substance: DUTASTERIDE
  19. TESTOSTERONE GEL [Concomitant]
     Active Substance: TESTOSTERONE
  20. K1/K2 [Concomitant]
  21. FOLIC ACID. [Concomitant]
     Active Substance: FOLIC ACID
  22. BETA-CAROTENE [Concomitant]
  23. OMEGA FISH OIL [Concomitant]
     Active Substance: FISH OIL\OMEGA-3 FATTY ACIDS
  24. VITAMIN B12 [Concomitant]
     Active Substance: CYANOCOBALAMIN
  25. L-ARGININE SR [Concomitant]

REACTIONS (6)
  - Amnesia [None]
  - Cognitive disorder [None]
  - Myalgia [None]
  - Disorientation [None]
  - Sleep disorder [None]
  - Memory impairment [None]

NARRATIVE: CASE EVENT DATE: 20160618
